FAERS Safety Report 7023448-8 (Version None)
Quarter: 2010Q3

REPORT INFORMATION
  Report Type: 
  Country: None (occurrence: None)
  Receive Date: 20100929
  Receipt Date: 20100906
  Transmission Date: 20110219
  Serious: Yes (Hospitalization)
  Sender: FDA-Public Use
  Company Number: 688513

PATIENT
  Age: 42 Year
  Sex: Male
  Weight: 73.9363 kg

DRUGS (1)
  1. QUICK-CARE MOISTURIZINE GEL WATERLESS ANTIMICROBIAL HAND SANITIZER [Suspect]

REACTIONS (4)
  - BLOOD ALCOHOL INCREASED [None]
  - HYPOGLYCAEMIA [None]
  - INCORRECT ROUTE OF DRUG ADMINISTRATION [None]
  - LOSS OF CONSCIOUSNESS [None]
